FAERS Safety Report 4594160-X (Version None)
Quarter: 2005Q1

REPORT INFORMATION
  Report Type: 
  Country: None (occurrence: None)
  Receive Date: 20050301
  Receipt Date: 20050228
  Transmission Date: 20050727
  Serious: Yes (Hospitalization)
  Sender: FDA-Public Use
  Company Number: US-GLAXOSMITHKLINE-A0547589A

PATIENT
  Age: 50 Year
  Sex: Female

DRUGS (5)
  1. IMITREX [Suspect]
     Indication: MIGRAINE
     Dosage: 25MG AS REQUIRED
     Route: 048
     Dates: start: 20020101
  2. PRAVACHOL [Concomitant]
     Indication: DRUG USE FOR UNKNOWN INDICATION
  3. ZYRTEC [Concomitant]
     Indication: DRUG USE FOR UNKNOWN INDICATION
  4. PAXIL CR [Concomitant]
     Indication: DRUG USE FOR UNKNOWN INDICATION
  5. MULTI-VITAMIN [Concomitant]
     Indication: DRUG USE FOR UNKNOWN INDICATION

REACTIONS (13)
  - ACCIDENT AT WORK [None]
  - AMNESIA [None]
  - ARTHRALGIA [None]
  - BACK INJURY [None]
  - CONDITION AGGRAVATED [None]
  - DIPLOPIA [None]
  - HEAD INJURY [None]
  - HYPOACUSIS [None]
  - JOINT DISLOCATION [None]
  - LACRIMATION DECREASED [None]
  - MIGRAINE [None]
  - PAIN [None]
  - SINUS HEADACHE [None]
